FAERS Safety Report 4444035-1 (Version None)
Quarter: 2004Q3

REPORT INFORMATION
  Report Type: 
  Country: None (occurrence: None)
  Receive Date: 20040729
  Receipt Date: 20040122
  Transmission Date: 20050211
  Serious: Yes (Other)
  Sender: FDA-Public Use
  Company Number: US-JNJFOC-20031104376

PATIENT
  Age: 58 Year
  Sex: Male

DRUGS (3)
  1. RISPERDAL [Suspect]
     Dosage: SEE IMAGE
     Route: 048
     Dates: start: 19990101, end: 20030401
  2. RISPERDAL [Suspect]
     Dosage: SEE IMAGE
     Route: 048
     Dates: start: 20000301
  3. TRAZADONE (TRAZODONE) [Concomitant]

REACTIONS (1)
  - TARDIVE DYSKINESIA [None]
